FAERS Safety Report 24215632 (Version 1)
Quarter: 2024Q3

REPORT INFORMATION
  Report Type: Spontaneous
  Country: IT (occurrence: IT)
  Receive Date: 20240816
  Receipt Date: 20240816
  Transmission Date: 20241017
  Serious: Yes (Hospitalization)
  Sender: AUROBINDO
  Company Number: IT-MINISAL02-997917

PATIENT
  Age: 17 Year
  Sex: Female

DRUGS (1)
  1. LORAZEPAM [Suspect]
     Active Substance: LORAZEPAM
     Indication: Product used for unknown indication
     Dosage: 6 MILLIGRAM
     Route: 048
     Dates: start: 20240721, end: 20240721

REACTIONS (3)
  - Somnolence [Not Recovered/Not Resolved]
  - Sopor [Not Recovered/Not Resolved]
  - Intentional overdose [Not Recovered/Not Resolved]

NARRATIVE: CASE EVENT DATE: 20240721
